FAERS Safety Report 7799737-6 (Version None)
Quarter: 2011Q4

REPORT INFORMATION
  Report Type: 
  Country: None (occurrence: None)
  Receive Date: 20111004
  Receipt Date: 20110927
  Transmission Date: 20120403
  Serious: Yes (Hospitalization)
  Sender: FDA-Public Use
  Company Number: WWISSUE-681

PATIENT

DRUGS (1)
  1. METHOCARBAMOL [Suspect]
     Indication: PRODUCT USED FOR UNKNOWN INDICATION
     Dates: start: 20110822, end: 20110909

REACTIONS (2)
  - PRODUCT QUALITY ISSUE [None]
  - GRAND MAL CONVULSION [None]
